FAERS Safety Report 18918259 (Version 1)
Quarter: 2021Q1

REPORT INFORMATION
  Report Type: Spontaneous
  Country: US (occurrence: US)
  Receive Date: 20210219
  Receipt Date: 20210219
  Transmission Date: 20210420
  Serious: No
  Sender: FDA-Public Use
  Company Number: US-BIOMARINAP-US-2021-134878

PATIENT
  Age: 45 Year
  Sex: Female
  Weight: 108 kg

DRUGS (6)
  1. PALYNZIQ [Suspect]
     Active Substance: PEGVALIASE-PQPZ
     Indication: PHENYLKETONURIA
     Dosage: 220 MILLIGRAM, QW
     Route: 030
     Dates: start: 20200528
  2. CENTRUM MULTIGUMMIES [Concomitant]
     Active Substance: MINERALS\VITAMINS
     Indication: PRODUCT USED FOR UNKNOWN INDICATION
     Dosage: UNK, QD
     Dates: start: 20190922
  3. PEPSIDOL [Concomitant]
     Indication: PREMEDICATION
     Dosage: 40 MILLIGRAM, QD
     Dates: start: 20190930
  4. PALYNZIQ [Suspect]
     Active Substance: PEGVALIASE-PQPZ
     Dosage: 2.5 MILLIGRAM
     Route: 030
     Dates: start: 201507
  5. CLARITIN [Concomitant]
     Active Substance: LORATADINE
     Indication: PREMEDICATION
     Dosage: 10 MILLIGRAM, QD
     Dates: start: 20200930
  6. RANITIDINE. [Concomitant]
     Active Substance: RANITIDINE
     Indication: PREMEDICATION
     Dosage: 150 MILLIGRAM, QD
     Dates: start: 201707, end: 20190930

REACTIONS (1)
  - Electrocardiogram abnormal [Unknown]
